FAERS Safety Report 26053231 (Version 1)
Quarter: 2025Q4

REPORT INFORMATION
  Report Type: Spontaneous
  Country: US (occurrence: None)
  Receive Date: 20251114
  Receipt Date: 20251114
  Transmission Date: 20260118
  Serious: No
  Sender: FDA-CTU
  Company Number: None

PATIENT
  Age: 43 Year
  Sex: Male
  Weight: 90.9 kg

DRUGS (12)
  1. YEZTUGO [Suspect]
     Active Substance: LENACAPAVIR SODIUM
     Dosage: 2 INJECTION(S) TWICE EVERY 6 MONT  SUBCUTANEOUS
     Route: 058
     Dates: start: 20251113
  2. Colestipol (1g) [Concomitant]
  3. Glimepiride (2mg) [Concomitant]
  4. Bupropion hydrochloride (150mg) [Concomitant]
  5. Citalopram (40mg) [Concomitant]
  6. CLARITIN [Concomitant]
     Active Substance: LORATADINE
  7. Tirosint 200mcg [Concomitant]
  8. Magnesium (250mg) [Concomitant]
  9. FLONASE [Concomitant]
     Active Substance: FLUTICASONE PROPIONATE
  10. Azelstine [Concomitant]
  11. Omega 3-6-9 (1030mg/420mg/150mg) [Concomitant]
  12. Calcium w/D3 [Concomitant]

REACTIONS (6)
  - Injection site pain [None]
  - Headache [None]
  - Arthralgia [None]
  - Pyrexia [None]
  - Incision site pain [None]
  - Abdominal pain [None]

NARRATIVE: CASE EVENT DATE: 20251114
